FAERS Safety Report 23735730 (Version 1)
Quarter: 2024Q2

REPORT INFORMATION
  Report Type: Spontaneous
  Country: US (occurrence: US)
  Receive Date: 20240412
  Receipt Date: 20240412
  Transmission Date: 20240716
  Serious: Yes (Life-Threatening, Hospitalization)
  Sender: FDA-Public Use
  Company Number: US-MYLANLABS-2024M1031903

PATIENT
  Age: 77 Year
  Sex: Male

DRUGS (2)
  1. ADENOSINE [Suspect]
     Active Substance: ADENOSINE
     Indication: Coronary artery disease
     Dosage: 6 MILLIGRAM
     Route: 065
  2. ADENOSINE [Suspect]
     Active Substance: ADENOSINE
     Dosage: 10 MILLIGRAM
     Route: 065

REACTIONS (3)
  - Coronary steal syndrome [Recovering/Resolving]
  - Ventricular fibrillation [Recovering/Resolving]
  - Off label use [Unknown]
